FAERS Safety Report 19088130 (Version 2)
Quarter: 2021Q3

REPORT INFORMATION
  Report Type: Report from Study
  Country: CO (occurrence: CO)
  Receive Date: 20210402
  Receipt Date: 20210712
  Transmission Date: 20211014
  Serious: Yes (Death, Other)
  Sender: FDA-Public Use
  Company Number: NVSC2021CO032488

PATIENT
  Age: 78 Year
  Sex: Female
  Weight: 62 kg

DRUGS (8)
  1. XOLAIR [Suspect]
     Active Substance: OMALIZUMAB
     Dosage: 300 MG, QMO, STARTED ONE YEAR AGO
     Route: 058
  2. DOLORSIN [Concomitant]
     Indication: OSTEOARTHRITIS
     Dosage: UNK, Q12H, 10 YEARS AGO
     Route: 048
  3. CALCIUM [Concomitant]
     Active Substance: CALCIUM
     Indication: OSTEOARTHRITIS
     Dosage: UNK, QD, STARTED 10 YEARS AGO
     Route: 048
  4. DOLORSIN [Concomitant]
     Indication: OSTEOPOROSIS
  5. CALCIUM [Concomitant]
     Active Substance: CALCIUM
     Indication: OSTEOPOROSIS
  6. XOLAIR [Suspect]
     Active Substance: OMALIZUMAB
     Indication: URTICARIA CHRONIC
     Dosage: 150 MG, EVERY 15 DAYS
     Route: 058
     Dates: start: 20190715
  7. XOLAIR [Suspect]
     Active Substance: OMALIZUMAB
     Indication: IDIOPATHIC URTICARIA
     Dosage: 150 MG, QMO, STOPPED ONE YEAR AGO
     Route: 058
  8. LOSARTAN. [Suspect]
     Active Substance: LOSARTAN
     Indication: HYPERTENSION
     Dosage: 50 MG, QD, STARTED 20 YEARS AGO
     Route: 048

REACTIONS (11)
  - Pleural effusion [Unknown]
  - Intra-abdominal fluid collection [Unknown]
  - Neoplasm malignant [Fatal]
  - Cardiac arrest [Unknown]
  - Choking [Unknown]
  - Fatigue [Unknown]
  - Pulmonary oedema [Unknown]
  - Inappropriate schedule of product administration [Unknown]
  - Cholelithiasis [Unknown]
  - Hepatic cirrhosis [Unknown]
  - Gastritis [Unknown]

NARRATIVE: CASE EVENT DATE: 202012
